FAERS Safety Report 8381745-8 (Version None)
Quarter: 2012Q2

REPORT INFORMATION
  Report Type: 
  Country: None (occurrence: None)
  Receive Date: 20120524
  Receipt Date: 20120515
  Transmission Date: 20120825
  Serious: No
  Sender: FDA-Public Use
  Company Number: US-BIOGENIDEC-2012BI017232

PATIENT
  Sex: Female

DRUGS (3)
  1. AVONEX [Suspect]
     Indication: MULTIPLE SCLEROSIS
     Route: 030
     Dates: end: 20120507
  2. NAPROXEN (ALEVE) [Concomitant]
     Indication: PREMEDICATION
     Dates: end: 20120507
  3. MOTRIN [Concomitant]
     Indication: PREMEDICATION
     Dates: end: 20120507

REACTIONS (8)
  - TREMOR [None]
  - NAUSEA [None]
  - PARAESTHESIA [None]
  - FATIGUE [None]
  - VISION BLURRED [None]
  - HEADACHE [None]
  - HYPOAESTHESIA [None]
  - MUSCULOSKELETAL STIFFNESS [None]
